FAERS Safety Report 25123869 (Version 2)
Quarter: 2025Q3

REPORT INFORMATION
  Report Type: Spontaneous
  Country: EU (occurrence: EU)
  Receive Date: 20250326
  Receipt Date: 20250810
  Transmission Date: 20251020
  Serious: Yes (Hospitalization, Other)
  Sender: ALEXION PHARMACEUTICALS
  Company Number: EU-SA-2025SA083400

PATIENT
  Age: 3 Month
  Sex: Male
  Weight: 4.91 kg

DRUGS (3)
  1. NIRSEVIMAB [Suspect]
     Active Substance: NIRSEVIMAB
  2. HEXYON [Concomitant]
     Active Substance: DIPHTHERIA AND TETANUS TOXOIDS AND ACELLULAR PERTUSSIS ADSORBED, INACTIVATED POLIOVIRUS AND HAEMOPHI
     Indication: Immunisation
  3. PREVENAR [Concomitant]
     Active Substance: PNEUMOCOCCAL 7-VALENT CONJUGATE VACCINE (DIPHTHERIA CRM197 PROTEIN)
     Indication: Immunisation

REACTIONS (11)
  - Respiratory syncytial virus bronchiolitis [Unknown]
  - Respiratory distress [Unknown]
  - Nasal congestion [Unknown]
  - Cough [Unknown]
  - Poor feeding infant [Unknown]
  - Tachypnoea [Unknown]
  - Rales [Unknown]
  - Wheezing [Unknown]
  - Eczema [Unknown]
  - Asthenia [Unknown]
  - Drug ineffective [Unknown]

NARRATIVE: CASE EVENT DATE: 20241201
